FAERS Safety Report 7617965-7 (Version None)
Quarter: 2011Q3

REPORT INFORMATION
  Report Type: 
  Country: None (occurrence: None)
  Receive Date: 20110718
  Receipt Date: 20110705
  Transmission Date: 20111222
  Serious: Yes (Hospitalization)
  Sender: FDA-Public Use
  Company Number: PHHY2011FR60741

PATIENT
  Sex: Male
  Weight: 72 kg

DRUGS (13)
  1. ASPEGIC 325 [Concomitant]
     Indication: MYOCARDIAL ISCHAEMIA
     Dosage: 100 MG PER DAY, UNK
  2. LANZOR [Concomitant]
     Indication: MYOCARDIAL ISCHAEMIA
     Dosage: 30 MG PER DAY, UNK
  3. DILTIAZEM HCL [Concomitant]
     Dosage: 60 MG, QID
  4. CORVASAL [Concomitant]
     Indication: MYOCARDIAL ISCHAEMIA
     Dosage: 4 MG, QID
  5. ATORVASTATIN CALCIUM [Suspect]
     Indication: MYOCARDIAL ISCHAEMIA
     Dosage: 20 MG, UNK
     Dates: start: 20091201
  6. ATORVASTATIN CALCIUM [Suspect]
     Dosage: 80 MG, UNK
  7. AMLODIPINE [Concomitant]
     Indication: MYOCARDIAL ISCHAEMIA
     Dosage: UNK UKN, UNK
     Dates: start: 20090101
  8. IKOREL [Concomitant]
     Indication: MYOCARDIAL ISCHAEMIA
     Dosage: 10 MG PER DAY, UNK
  9. RASILEZ [Suspect]
     Indication: MYOCARDIAL ISCHAEMIA
     Dosage: 300 MG, QD
     Dates: start: 20091201, end: 20100101
  10. PLAVIX [Suspect]
     Dosage: 75 MG, QD
     Dates: start: 20091201, end: 20100101
  11. COLCHICINE [Suspect]
     Indication: MYOCARDIAL ISCHAEMIA
     Dosage: 1 DF, QD
     Dates: start: 20100101
  12. NEBIVOLOL HCL [Suspect]
     Indication: MYOCARDIAL ISCHAEMIA
     Dosage: 2.5 MG, QD
     Dates: start: 20091201, end: 20100101
  13. PREDNISOLONE [Concomitant]
     Indication: MYOCARDIAL ISCHAEMIA
     Dosage: 10 MG PER DAY, UNK

REACTIONS (9)
  - WEIGHT DECREASED [None]
  - ALANINE AMINOTRANSFERASE INCREASED [None]
  - BLOOD ALKALINE PHOSPHATASE INCREASED [None]
  - ABDOMINAL PAIN [None]
  - DIARRHOEA [None]
  - ASPARTATE AMINOTRANSFERASE INCREASED [None]
  - GAMMA-GLUTAMYLTRANSFERASE INCREASED [None]
  - MIXED LIVER INJURY [None]
  - DYSPEPSIA [None]
